FAERS Safety Report 9124085 (Version 3)
Quarter: 2014Q1

REPORT INFORMATION
  Report Type: Spontaneous
  Country: JP (occurrence: JP)
  Receive Date: 20130116
  Receipt Date: 20140128
  Transmission Date: 20141002
  Serious: Yes (Hospitalization, Other)
  Sender: FDA-Public Use
  Company Number: JP-PFIZER INC-2012322348

PATIENT
  Age: 82 Year
  Sex: Male
  Weight: 55.9 kg

DRUGS (1)
  1. INLYTA [Suspect]
     Indication: RENAL CANCER METASTATIC
     Dosage: 5 MG, 2X/DAY
     Route: 048
     Dates: start: 20121002, end: 20121129

REACTIONS (2)
  - Anal fistula [Recovered/Resolved]
  - Gastrointestinal haemorrhage [Unknown]
